FAERS Safety Report 9760242 (Version 1)
Quarter: 2013Q4

REPORT INFORMATION
  Report Type: Spontaneous
  Country: US (occurrence: None)
  Receive Date: 20131212
  Receipt Date: 20131212
  Transmission Date: 20140711
  Serious: Yes (Hospitalization)
  Sender: FDA-Public Use
  Company Number: 2013P1021781

PATIENT
  Age: 38 Year
  Sex: Male

DRUGS (1)
  1. SULFAMETHOXAZOLE AND TRIMETHOPRIM [Suspect]
     Indication: PROSTATITIS

REACTIONS (7)
  - Cholecystitis acute [None]
  - Gastritis erosive [None]
  - Epstein-Barr virus antibody positive [None]
  - Cutaneous vasculitis [None]
  - Smooth muscle antibody positive [None]
  - Drug reaction with eosinophilia and systemic symptoms [None]
  - Granulomatous liver disease [None]
